FAERS Safety Report 8586587-6 (Version None)
Quarter: 2012Q3

REPORT INFORMATION
  Report Type: 
  Country: None (occurrence: None)
  Receive Date: 20120810
  Receipt Date: 20120802
  Transmission Date: 20120928
  Serious: Yes (Death, Hospitalization, Other)
  Sender: FDA-Public Use
  Company Number: DE-JNJFOC-20120607801

PATIENT
  Sex: Female
  Weight: 111 kg

DRUGS (10)
  1. HYDROMORPHINE HYDROCHLORIDE [Concomitant]
  2. TOCILIZUMAB [Suspect]
     Indication: RHEUMATOID ARTHRITIS
     Route: 042
     Dates: start: 20120515, end: 20120515
  3. PREDNISOLONE [Suspect]
     Indication: PRODUCT USED FOR UNKNOWN INDICATION
  4. BISOPROLOL FUMARATE [Concomitant]
  5. TORSEMIDE [Concomitant]
  6. SIMVASTATIN [Concomitant]
  7. CALCIUM CARBONATE [Suspect]
     Indication: PRODUCT USED FOR UNKNOWN INDICATION
  8. PANTOPRAZOLE [Concomitant]
  9. XARELTO [Suspect]
     Indication: DEEP VEIN THROMBOSIS
     Route: 048
     Dates: start: 20120401, end: 20120529
  10. LYRICA [Concomitant]

REACTIONS (2)
  - MESENTERIC ARTERY THROMBOSIS [None]
  - INTESTINAL ISCHAEMIA [None]
